FAERS Safety Report 8428165-5 (Version None)
Quarter: 2012Q2

REPORT INFORMATION
  Report Type: 
  Country: None (occurrence: None)
  Receive Date: 20120611
  Receipt Date: 20120607
  Transmission Date: 20120825
  Serious: Yes (Other)
  Sender: FDA-Public Use
  Company Number: US-PFIZER INC-2012129937

PATIENT

DRUGS (1)
  1. TOVIAZ [Suspect]
     Dosage: UNK

REACTIONS (4)
  - POLLAKIURIA [None]
  - SWOLLEN TONGUE [None]
  - DRY MOUTH [None]
  - GASTROINTESTINAL OEDEMA [None]
